FAERS Safety Report 9370085 (Version 1)
Quarter: 2013Q2

REPORT INFORMATION
  Report Type: Spontaneous
  Country: US (occurrence: US)
  Receive Date: 20130626
  Receipt Date: 20130626
  Transmission Date: 20140414
  Serious: No
  Sender: FDA-Public Use
  Company Number: US-MYLANLABS-2013S1007098

PATIENT
  Age: 50 Year
  Sex: Male
  Weight: 81.65 kg

DRUGS (3)
  1. CANDESARTAN CILEXETIL AND HYDROCHLOROTHIAZIDE TABLETS [Suspect]
     Indication: BLOOD PRESSURE INCREASED
     Dosage: 32MG/12.5MG
     Route: 048
     Dates: start: 201302
  2. METOPROLOL SUCCINATE [Concomitant]
     Indication: BLOOD PRESSURE INCREASED
     Route: 048
     Dates: start: 2008
  3. AMLODIPINE BESYLATE [Concomitant]
     Indication: BLOOD PRESSURE INCREASED
     Route: 048
     Dates: start: 2008

REACTIONS (4)
  - Palpitations [Not Recovered/Not Resolved]
  - Palpitations [Not Recovered/Not Resolved]
  - Anxiety [Not Recovered/Not Resolved]
  - Musculoskeletal pain [Not Recovered/Not Resolved]
